FAERS Safety Report 5995749-3 (Version None)
Quarter: 2008Q4

REPORT INFORMATION
  Report Type: 
  Country: None (occurrence: None)
  Receive Date: 20081212
  Receipt Date: 20081202
  Transmission Date: 20090506
  Serious: Yes (Hospitalization)
  Sender: FDA-Public Use
  Company Number: CA-PFIZER INC-2008056223

PATIENT

DRUGS (27)
  1. SU-011,248 [Suspect]
     Indication: METASTATIC RENAL CELL CARCINOMA
     Dosage: 4 WEEKS
     Route: 048
     Dates: start: 20080602
  2. PLAVIX [Concomitant]
     Route: 048
     Dates: start: 20070601
  3. LIPITOR [Concomitant]
     Route: 048
     Dates: start: 20070601
  4. ASPIRIN [Concomitant]
     Route: 048
     Dates: start: 20070601
  5. SYMBICORT [Concomitant]
     Route: 055
     Dates: start: 20080530
  6. VENTOLIN [Concomitant]
     Route: 055
     Dates: start: 19970601
  7. VALSARTAN [Concomitant]
     Route: 048
  8. ALPHAGAN [Concomitant]
     Route: 047
     Dates: start: 20050601
  9. TRAVATAN [Concomitant]
     Route: 047
     Dates: start: 20050601
  10. MORPHINE [Concomitant]
     Route: 048
     Dates: start: 20080605
  11. NITROGLYCERIN [Concomitant]
     Route: 055
     Dates: start: 20070601
  12. RAMIPRIL [Concomitant]
     Route: 048
     Dates: start: 20070601
  13. ENOXAPARIN SODIUM [Concomitant]
     Route: 058
     Dates: start: 20080718
  14. LACTULOSE [Concomitant]
     Route: 048
     Dates: start: 20080718
  15. DOCUSATE SODIUM [Concomitant]
     Route: 048
     Dates: start: 20080717
  16. RABEPRAZOLE SODIUM [Concomitant]
     Route: 048
     Dates: start: 20080707
  17. SENNOSIDES [Concomitant]
     Route: 048
     Dates: start: 20080717
  18. MICROLAX [Concomitant]
     Route: 054
     Dates: start: 20080717
  19. ALL OTHER THERAPEUTIC PRODUCTS [Concomitant]
     Route: 048
     Dates: start: 20080717
  20. FENTANYL-100 [Concomitant]
     Dates: start: 20080718
  21. ACETAMINOPHEN [Concomitant]
     Route: 048
     Dates: start: 20080718
  22. MORPHINE SULFATE [Concomitant]
     Dosage: UNK
     Route: 048
  23. OXAZEPAM [Concomitant]
     Dosage: UNK
     Route: 048
  24. OXYCOCET [Concomitant]
     Route: 048
     Dates: start: 20080718
  25. PROCHLORPERAZINE [Concomitant]
     Dosage: UNK
     Route: 048
  26. NOROXIN [Concomitant]
     Route: 048
     Dates: start: 20080719, end: 20080727
  27. NOROXIN [Concomitant]
     Route: 048
     Dates: start: 20080801, end: 20080807

REACTIONS (1)
  - PULMONARY EMBOLISM [None]
